FAERS Safety Report 4445117-0 (Version None)
Quarter: 2004Q3

REPORT INFORMATION
  Report Type: 
  Country: None (occurrence: None)
  Receive Date: 20040907
  Receipt Date: 20040820
  Transmission Date: 20050211
  Serious: Yes (Disabling, Other)
  Sender: FDA-Public Use
  Company Number: 194832

PATIENT
  Age: 44 Year
  Sex: Female

DRUGS (1)
  1. AVONEX [Suspect]
     Indication: MULTIPLE SCLEROSIS
     Dosage: 30 MCG QW IM
     Route: 030

REACTIONS (13)
  - ANXIETY [None]
  - COLD SWEAT [None]
  - CONDITION AGGRAVATED [None]
  - FATIGUE [None]
  - FEELING HOT [None]
  - HYPERTHYROIDISM [None]
  - HYPOTHYROIDISM [None]
  - MENTAL DISORDER [None]
  - MULTIPLE SCLEROSIS [None]
  - MYOPATHY [None]
  - RESTLESSNESS [None]
  - THYROIDITIS [None]
  - TREMOR [None]
